FAERS Safety Report 4921360-9 (Version None)
Quarter: 2006Q1

REPORT INFORMATION
  Report Type: 
  Country: None (occurrence: None)
  Receive Date: 20060222
  Receipt Date: 20060222
  Transmission Date: 20060701
  Serious: Yes (Hospitalization)
  Sender: FDA-Public Use
  Company Number: None

PATIENT
  Age: 63 Year
  Sex: Female
  Weight: 113.3993 kg

DRUGS (5)
  1. WARFARIN [Suspect]
     Indication: DEEP VEIN THROMBOSIS
     Dosage: 7.5 MG DAILY
     Dates: start: 20050907, end: 20050913
  2. ENOXAPARIN SODIUM [Suspect]
     Indication: DEEP VEIN THROMBOSIS
     Dosage: 50MG SQ Q12, THEN 110MG SQ Q12
     Route: 058
     Dates: start: 20050906, end: 20050911
  3. GLUCOTROL [Concomitant]
  4. COUMADIN [Concomitant]
  5. ENOXAPARIN SODIUM [Concomitant]

REACTIONS (4)
  - ABDOMINAL HAEMATOMA [None]
  - HAEMATOCRIT DECREASED [None]
  - HAEMOGLOBIN DECREASED [None]
  - INTERNATIONAL NORMALISED RATIO INCREASED [None]
